FAERS Safety Report 6023713-7 (Version None)
Quarter: 2008Q4

REPORT INFORMATION
  Report Type: 
  Country: None (occurrence: None)
  Receive Date: 20081226
  Receipt Date: 20081226
  Transmission Date: 20090506
  Serious: Yes (Other)
  Sender: FDA-Public Use
  Company Number: None

PATIENT
  Sex: Female
  Weight: 45.3597 kg

DRUGS (2)
  1. ADVAIR DISKUS 250/50 [Suspect]
     Indication: CHRONIC OBSTRUCTIVE PULMONARY DISEASE
     Dosage: 1 INHALATION DAILY
     Dates: start: 20070101, end: 20080901
  2. SYMBICORT [Suspect]
     Dosage: 2 INHALATIONS DAILY (DURATION: 2 DOSES)
     Dates: start: 20081101, end: 20081102

REACTIONS (2)
  - DRUG INEFFECTIVE [None]
  - ORAL CANDIDIASIS [None]
